FAERS Safety Report 13904274 (Version 1)
Quarter: 2017Q3

REPORT INFORMATION
  Report Type: Spontaneous
  Country: US (occurrence: US)
  Receive Date: 20170825
  Receipt Date: 20170825
  Transmission Date: 20171127
  Serious: Yes (Other)
  Sender: FDA-Public Use
  Company Number: US-SUN PHARMACEUTICAL INDUSTRIES LTD-2017US-148513

PATIENT
  Age: 40 Year
  Sex: Female

DRUGS (1)
  1. BUPRENORPHINE. [Suspect]
     Active Substance: BUPRENORPHINE
     Indication: DRUG USE DISORDER
     Dosage: 8 MG, TID
     Route: 060
     Dates: start: 20170616, end: 20170713

REACTIONS (9)
  - Headache [Unknown]
  - Drug dependence [Unknown]
  - Therapeutic response decreased [Unknown]
  - Anxiety [Unknown]
  - Depression [Unknown]
  - Oral discomfort [Unknown]
  - Nausea [Unknown]
  - Product substitution issue [Unknown]
  - Abdominal discomfort [Unknown]

NARRATIVE: CASE EVENT DATE: 2017
